FAERS Safety Report 17557689 (Version 1)
Quarter: 2020Q1

REPORT INFORMATION
  Report Type: Spontaneous
  Country: DE (occurrence: DE)
  Receive Date: 20200318
  Receipt Date: 20200318
  Transmission Date: 20200409
  Serious: Yes (Hospitalization)
  Sender: FDA-Public Use
  Company Number: DE-TEVA-2020-DE-1202825

PATIENT
  Age: 74 Year
  Sex: Male

DRUGS (13)
  1. TAMSULOSIN [Concomitant]
     Active Substance: TAMSULOSIN
     Dosage: 0.4 MG, 0-1-0-0
  2. SERROFLO [Concomitant]
     Dosage: 2-0-0-2
  3. SALBUTAMOL [Concomitant]
     Active Substance: ALBUTEROL
     Dosage: REQUIREMENT
  4. SIMVASTATIN. [Concomitant]
     Active Substance: SIMVASTATIN
     Dosage: 40 MG, 1-0-0-0
  5. ENALAPRIL [Concomitant]
     Active Substance: ENALAPRIL
     Dosage: 5 MG, 1-0-0-2
  6. ALLOPURINOL. [Concomitant]
     Active Substance: ALLOPURINOL
     Dosage: 300 MG, 0-0-0-1
  7. IBUPROFEN. [Concomitant]
     Active Substance: IBUPROFEN
     Dosage: REQUIREMENT
  8. TORASEMID [Concomitant]
     Active Substance: TORSEMIDE
     Dosage: 10 MG, 1-0-0-0
  9. FUROSEMID [Concomitant]
     Active Substance: FUROSEMIDE
     Dosage: 40 MG, 0-1-0-0
  10. ACETYLSALICYLSAURE [Concomitant]
     Active Substance: ASPIRIN
     Dosage: 100 MG, 0-1-0-0
  11. EKLIRA GENUAIR [Concomitant]
     Active Substance: ACLIDINIUM BROMIDE
     Dosage: 1-0-0-1
  12. CARVEDILOL. [Suspect]
     Active Substance: CARVEDILOL
     Dosage: 12.5 MG, 0.5-0.5-0-0.5
     Route: 065
  13. AMLODIPIN [Concomitant]
     Active Substance: AMLODIPINE BESYLATE
     Dosage: 5 MG, 0-0-0-1

REACTIONS (3)
  - Atrial fibrillation [Recovered/Resolved]
  - Bradycardia [Recovered/Resolved]
  - Electrocardiogram abnormal [Recovered/Resolved]
